FAERS Safety Report 8457402-6 (Version None)
Quarter: 2012Q2

REPORT INFORMATION
  Report Type: 
  Country: None (occurrence: None)
  Receive Date: 20120621
  Receipt Date: 20120614
  Transmission Date: 20120825
  Serious: Yes (Disabling)
  Sender: FDA-Public Use
  Company Number: CHPA2012BR012649

PATIENT
  Age: 50 Year
  Sex: Male
  Weight: 90 kg

DRUGS (2)
  1. ACETAMINOPHEN, ASPIRIN AND CAFFEINE [Suspect]
     Dosage: 1 DF, PRN
     Route: 048
  2. ACETAMINOPHEN, ASPIRIN AND CAFFEINE [Suspect]
     Indication: HEADACHE
     Dosage: 1-2 TABLETS PRN, FOR OVER 20 YEARS
     Route: 048

REACTIONS (2)
  - VISUAL ACUITY REDUCED [None]
  - UNDERDOSE [None]
